FAERS Safety Report 4316084-5 (Version None)
Quarter: 2004Q1

REPORT INFORMATION
  Report Type: 
  Country: None (occurrence: None)
  Receive Date: 20040310
  Receipt Date: 20040301
  Transmission Date: 20041129
  Serious: Yes (Disabling)
  Sender: FDA-Public Use
  Company Number: 23084

PATIENT
  Age: 50 Year
  Sex: Male

DRUGS (1)
  1. IMIQUIMOD (IMIQUIMOD) [Suspect]
     Indication: BASAL CELL CARCINOMA
     Dosage: 3 IN 1 WEEK (S) ) TOPICAL
     Route: 061
     Dates: start: 20011201, end: 20040101

REACTIONS (1)
  - STEVENS-JOHNSON SYNDROME [None]
